FAERS Safety Report 4367194-8 (Version None)
Quarter: 2004Q2

REPORT INFORMATION
  Report Type: 
  Country: None (occurrence: None)
  Receive Date: 20040524
  Receipt Date: 20040514
  Transmission Date: 20050107
  Serious: Yes (Death)
  Sender: FDA-Public Use
  Company Number: USA-2004-0013323

PATIENT
  Age: 58 Year
  Sex: Female

DRUGS (5)
  1. OXYCONTIN [Suspect]
  2. MIRTAZAPINE [Suspect]
  3. CITALOPRAM [Suspect]
  4. LIDOCAINE [Suspect]
  5. ATROPINE [Suspect]

REACTIONS (7)
  - ABDOMINAL PAIN [None]
  - ANTIDEPRESSANT DRUG LEVEL BELOW THERAPEUTIC [None]
  - CARDIO-RESPIRATORY ARREST [None]
  - DEHYDRATION [None]
  - MALNUTRITION [None]
  - PNEUMONIA [None]
  - SELF-MEDICATION [None]
